FAERS Safety Report 5350789-2 (Version None)
Quarter: 2007Q2

REPORT INFORMATION
  Report Type: 
  Country: None (occurrence: None)
  Receive Date: 20070606
  Receipt Date: 20070606
  Transmission Date: 20071010
  Serious: Yes (Life-Threatening, Hospitalization)
  Sender: FDA-Public Use
  Company Number: None

PATIENT
  Age: 58 Year
  Sex: Female
  Weight: 78.0187 kg

DRUGS (1)
  1. CARTIA XT [Suspect]
     Indication: ATRIAL TACHYCARDIA
     Dosage: 180MG ONCE A DAY PO
     Route: 048
     Dates: start: 20070328, end: 20070416

REACTIONS (9)
  - BACK PAIN [None]
  - CHEST PAIN [None]
  - DRY EYE [None]
  - EROSIVE OESOPHAGITIS [None]
  - GASTRITIS EROSIVE [None]
  - SKIN EXFOLIATION [None]
  - STEVENS-JOHNSON SYNDROME [None]
  - TRACHEAL PAIN [None]
  - TROPONIN INCREASED [None]
